FAERS Safety Report 5230462-1 (Version None)
Quarter: 2007Q1

REPORT INFORMATION
  Report Type: 
  Country: None (occurrence: None)
  Receive Date: 20070201
  Receipt Date: 20070122
  Transmission Date: 20070707
  Serious: No
  Sender: FDA-Public Use
  Company Number: 2007-153438-NL

PATIENT
  Age: 79 Year
  Sex: Male

DRUGS (7)
  1. MIRTAZAPINE [Suspect]
     Indication: DEPRESSION
     Dosage: 30 MG QD
     Route: 048
     Dates: start: 20061121, end: 20070103
  2. ATORVASTATIN [Concomitant]
  3. FLECAINIDE ACETATE [Concomitant]
  4. OMEPRAZOLE [Concomitant]
  5. SOTALOL HYDROCHLORIDE [Concomitant]
  6. VERAPAMIL HYDROCHLORIDE [Concomitant]
  7. WARFARIN SODIUM [Concomitant]

REACTIONS (3)
  - GENERALISED ERYTHEMA [None]
  - OEDEMA [None]
  - SKIN EXFOLIATION [None]
